FAERS Safety Report 5602774-0 (Version None)
Quarter: 2008Q1

REPORT INFORMATION
  Report Type: 
  Country: None (occurrence: None)
  Receive Date: 20080125
  Receipt Date: 20080116
  Transmission Date: 20080703
  Serious: Yes (Other)
  Sender: FDA-Public Use
  Company Number: SE-ABBOTT-08P-150-0433602-00

PATIENT
  Sex: Female

DRUGS (2)
  1. ADALIMUMAB [Suspect]
     Indication: RHEUMATOID ARTHRITIS
     Dosage: NOT REPORTED
  2. HEPATITIS VACCINES [Suspect]
     Indication: IMMUNISATION
     Dosage: NOT REPORTED

REACTIONS (1)
  - LEUKOENCEPHALOMYELITIS [None]
